FAERS Safety Report 6045578-X (Version None)
Quarter: 2009Q1

REPORT INFORMATION
  Report Type: 
  Country: None (occurrence: None)
  Receive Date: 20090121
  Receipt Date: 20090113
  Transmission Date: 20090719
  Serious: Yes (Hospitalization)
  Sender: FDA-Public Use
  Company Number: US-ASTRAZENECA-2009UW01032

PATIENT
  Age: 897 Month
  Sex: Female

DRUGS (11)
  1. CRESTOR [Suspect]
     Indication: HYPERCHOLESTEROLAEMIA
     Dosage: 20 MG
     Route: 048
  2. TOPROL-XL [Concomitant]
     Route: 048
  3. LISINOPRIL [Concomitant]
     Route: 048
  4. WATER PILL [Concomitant]
  5. ZETIA [Concomitant]
  6. NORVASC [Concomitant]
  7. VITAMIN [Concomitant]
  8. CALCIUM W/VITAMIN D [Concomitant]
  9. LORATADINE [Concomitant]
  10. ASPIRIN [Concomitant]
  11. LOVAZA [Concomitant]

REACTIONS (2)
  - CAROTID ARTERY DISEASE [None]
  - HIP ARTHROPLASTY [None]
